FAERS Safety Report 13150517 (Version 1)
Quarter: 2017Q1

REPORT INFORMATION
  Report Type: Spontaneous
  Country: US (occurrence: US)
  Receive Date: 20170125
  Receipt Date: 20170125
  Transmission Date: 20170428
  Serious: Yes (Death)
  Sender: FDA-Public Use
  Company Number: US-PFIZER INC-2017029100

PATIENT
  Age: 22 Year
  Sex: Male

DRUGS (4)
  1. FENTANYL CITRATE. [Suspect]
     Active Substance: FENTANYL CITRATE
  2. AMFETAMINE [Suspect]
     Active Substance: AMPHETAMINE
  3. HEROIN [Suspect]
     Active Substance: DIACETYLMORPHINE
  4. COCAINE [Suspect]
     Active Substance: COCAINE

REACTIONS (3)
  - Cardiac arrest [Fatal]
  - Completed suicide [Fatal]
  - Respiratory arrest [Fatal]

NARRATIVE: CASE EVENT DATE: 2015
